APPROVED DRUG PRODUCT: CELECOXIB
Active Ingredient: CELECOXIB
Strength: 400MG
Dosage Form/Route: CAPSULE;ORAL
Application: A207872 | Product #004 | TE Code: AB
Applicant: TIANJIN TIANYAO PHARMACEUTICALS CO LTD
Approved: Feb 25, 2020 | RLD: No | RS: No | Type: RX